FAERS Safety Report 7612199-4 (Version None)
Quarter: 2011Q3

REPORT INFORMATION
  Report Type: 
  Country: None (occurrence: None)
  Receive Date: 20110715
  Receipt Date: 20110708
  Transmission Date: 20111222
  Serious: Yes (Other)
  Sender: FDA-Public Use
  Company Number: BR-ABBOTT-10P-020-0636107-00

PATIENT
  Sex: Female
  Weight: 72 kg

DRUGS (12)
  1. ENALAPRIL MALEATE [Concomitant]
     Indication: HYPERTENSION
     Route: 048
  2. METOPROLOL SUCCINATE [Concomitant]
     Indication: ARRHYTHMIA PROPHYLAXIS
     Route: 048
  3. ARAVA [Concomitant]
     Indication: RHEUMATOID ARTHRITIS
     Route: 048
  4. ENALAPRIL MALEATE [Concomitant]
     Indication: CARDIAC DISORDER
  5. HYDROCHLOROTHIAZIDE [Concomitant]
     Indication: DIURETIC THERAPY
     Route: 048
  6. CINNARIZINE [Concomitant]
     Indication: LABYRINTHITIS
     Route: 048
  7. ATORVASTATIN [Concomitant]
     Indication: BLOOD CHOLESTEROL INCREASED
     Route: 048
  8. ATORVASTATIN [Concomitant]
     Route: 048
  9. HUMIRA [Suspect]
     Indication: RHEUMATOID ARTHRITIS
     Route: 058
  10. ASPIRIN [Concomitant]
     Indication: ANTICOAGULANT THERAPY
     Route: 048
     Dates: start: 19920101
  11. HYDROCHLOROTHIAZIDE [Concomitant]
     Indication: CARDIAC DISORDER
  12. PREDNISONE 5MG/ MELOXICAM 8MG [Concomitant]
     Indication: RHEUMATOID ARTHRITIS
     Dosage: 5MG/8MG
     Route: 048

REACTIONS (18)
  - JOINT SWELLING [None]
  - ARTHRALGIA [None]
  - JOINT EFFUSION [None]
  - LIMB ASYMMETRY [None]
  - PAIN IN EXTREMITY [None]
  - ANKLE DEFORMITY [None]
  - OSTEOARTHRITIS [None]
  - POST PROCEDURAL HAEMORRHAGE [None]
  - LOCALISED OEDEMA [None]
  - ANGINA PECTORIS [None]
  - DENTAL OPERATION [None]
  - INJECTION SITE PAIN [None]
  - LIMB INJURY [None]
  - KNEE DEFORMITY [None]
  - CARDIAC DISORDER [None]
  - FOOT DEFORMITY [None]
  - WEIGHT INCREASED [None]
  - BLOOD CHOLESTEROL ABNORMAL [None]
